FAERS Safety Report 6942148-3 (Version None)
Quarter: 2010Q3

REPORT INFORMATION
  Report Type: 
  Country: None (occurrence: None)
  Receive Date: 20100817
  Receipt Date: 20100602
  Transmission Date: 20110219
  Serious: Yes (Other)
  Sender: FDA-Public Use
  Company Number: 20108866

PATIENT
  Sex: Male

DRUGS (1)
  1. LIORESAL [Suspect]
     Indication: MUSCLE SPASTICITY
     Dosage: 1135 - 1157 MCG, DAILY, INTRATHECAL
     Route: 037

REACTIONS (10)
  - DISCOMFORT [None]
  - DRUG WITHDRAWAL SYNDROME [None]
  - INSOMNIA [None]
  - MUSCLE SPASTICITY [None]
  - MUSCLE TWITCHING [None]
  - PARAESTHESIA [None]
  - PRURITUS [None]
  - TREMOR [None]
  - UNDERDOSE [None]
  - URINARY RETENTION [None]
